FAERS Safety Report 6725440-7 (Version None)
Quarter: 2010Q2

REPORT INFORMATION
  Report Type: 
  Country: None (occurrence: None)
  Receive Date: 20100514
  Receipt Date: 20100504
  Transmission Date: 20101027
  Serious: Yes (Hospitalization)
  Sender: FDA-Public Use
  Company Number: US-JNJFOC-20100300513

PATIENT
  Sex: Female
  Weight: 78.02 kg

DRUGS (6)
  1. REMICADE [Suspect]
     Indication: CROHN'S DISEASE
     Dosage: 50 INFUSIONS
     Route: 042
  2. REMICADE [Suspect]
     Dosage: 3 INFUSIONS ON UNSPECIFIED DATES PRIOR TO BASELINE
     Route: 042
  3. TETRACYCLINE [Suspect]
     Indication: DRUG USE FOR UNKNOWN INDICATION
  4. ANTIBIOTICS [Concomitant]
  5. ANTISPASMODICS [Concomitant]
  6. ANTIDEPRESSANTS [Concomitant]

REACTIONS (1)
  - BENIGN INTRACRANIAL HYPERTENSION [None]
